FAERS Safety Report 12114522 (Version 1)
Quarter: 2016Q1

REPORT INFORMATION
  Report Type: Spontaneous
  Country: US (occurrence: US)
  Receive Date: 20160225
  Receipt Date: 20160225
  Transmission Date: 20160526
  Serious: No
  Sender: FDA-Public Use
  Company Number: US-RAPTOR PHARMACEUTICALS, INC.-RAP-001161-2015

PATIENT
  Age: 23 Year
  Sex: Female

DRUGS (3)
  1. PROCYSBI DELAYED-RELEASE [Suspect]
     Active Substance: CYSTEAMINE BITARTRATE
     Indication: CYSTINOSIS
     Dosage: 300 MG, EVERY 12 HOURS
     Route: 048
     Dates: start: 20150908
  2. NAPROXEN. [Concomitant]
     Active Substance: NAPROXEN
     Indication: PRODUCT USED FOR UNKNOWN INDICATION
     Dosage: 500 MG, TWICE A DAY AS NEEDED
     Route: 065
     Dates: start: 20151109
  3. CYSTEAMINE [Concomitant]
     Active Substance: CYSTEAMINE
     Indication: PRODUCT USED FOR UNKNOWN INDICATION
     Dosage: 1  DROP IN EACH EYE EVERY HOUR WHILE AWAKE
     Route: 047
     Dates: start: 201508

REACTIONS (1)
  - Migraine [Not Recovered/Not Resolved]

NARRATIVE: CASE EVENT DATE: 20150908
